FAERS Safety Report 12774273 (Version 2)
Quarter: 2016Q4

REPORT INFORMATION
  Report Type: Spontaneous
  Country: US (occurrence: US)
  Receive Date: 20160923
  Receipt Date: 20161028
  Transmission Date: 20170207
  Serious: No
  Sender: FDA-Public Use
  Company Number: US-PFIZER INC-2016443355

PATIENT
  Age: 54 Year
  Sex: Male

DRUGS (1)
  1. SUTENT [Suspect]
     Active Substance: SUNITINIB MALATE
     Indication: RENAL CELL CARCINOMA
     Dosage: 50 MG, CYCLIC (28 DAYS 14 DAYS OFF)
     Dates: start: 2013

REACTIONS (5)
  - Gingival pain [Recovering/Resolving]
  - Amnesia [Unknown]
  - Memory impairment [Unknown]
  - Oral pain [Recovering/Resolving]
  - Skin fissures [Recovering/Resolving]
